FAERS Safety Report 24432948 (Version 1)
Quarter: 2024Q4

REPORT INFORMATION
  Report Type: Spontaneous
  Country: NL (occurrence: NL)
  Receive Date: 20241014
  Receipt Date: 20241014
  Transmission Date: 20250115
  Serious: Yes (Congenital Anomaly, Other)
  Sender: JUBILANT
  Company Number: None

PATIENT
  Age: 1 Day
  Sex: Male
  Weight: 3.8 kg

DRUGS (1)
  1. PAROXETINE [Suspect]
     Active Substance: PAROXETINE
     Indication: Mental disorder
     Dosage: 20 MG, ONCE PER DAY
     Route: 064
     Dates: start: 20230101

REACTIONS (3)
  - Nervous system disorder [Recovering/Resolving]
  - Perinatal stroke [Recovering/Resolving]
  - Maternal exposure during pregnancy [Unknown]
